FAERS Safety Report 17216458 (Version 2)
Quarter: 2020Q2

REPORT INFORMATION
  Report Type: Spontaneous
  Country: FR (occurrence: FR)
  Receive Date: 20191230
  Receipt Date: 20200609
  Transmission Date: 20200713
  Serious: Yes (Hospitalization, Other)
  Sender: FDA-Public Use
  Company Number: FR-AUROBINDO-AUR-APL-2019-108016

PATIENT
  Age: 64 Year
  Sex: Female
  Weight: 63 kg

DRUGS (8)
  1. FASLODEX [Suspect]
     Active Substance: FULVESTRANT
     Indication: BREAST CANCER
     Dosage: 2 DOSAGE FORM, 1 MONTHS
     Route: 051
     Dates: end: 201911
  2. NEO-MERCAZOLE [Suspect]
     Active Substance: CARBIMAZOLE
     Indication: HYPERTHYROIDISM
     Dosage: 1 DOSAGE FORM, ONCE A DAY
     Route: 048
     Dates: end: 201911
  3. INNOHEP [Suspect]
     Active Substance: TINZAPARIN SODIUM
     Indication: THROMBOSIS PROPHYLAXIS
     Dosage: 1 DOSAGE FORM, ONCE A DAY
     Route: 058
     Dates: start: 2017, end: 201911
  4. ABASAGLAR [Suspect]
     Active Substance: INSULIN GLARGINE
     Indication: TYPE 2 DIABETES MELLITUS
     Dosage: 22 INTERNATIONAL UNIT, ONCE A DAY
     Route: 058
     Dates: end: 201911
  5. PROPRANOLOL [Suspect]
     Active Substance: PROPRANOLOL HYDROCHLORIDE
     Indication: HYPERTENSION
     Dosage: 100 MILLIGRAM, ONCE A DAY
     Route: 048
     Dates: end: 201911
  6. COVERSYL [Suspect]
     Active Substance: PERINDOPRIL
     Indication: HYPERTENSION
     Dosage: 1 DOSAGE FORM, ONCE A DAY
     Route: 048
     Dates: end: 201911
  7. TRAMADOL. [Suspect]
     Active Substance: TRAMADOL
     Indication: PAIN
     Dosage: 200 MILLIGRAM, ONCE A DAY
     Route: 048
     Dates: end: 201911
  8. IBRANCE [Suspect]
     Active Substance: PALBOCICLIB
     Indication: BREAST CANCER
     Dosage: 2100 MILLIGRAM, 28 DAYS
     Route: 048
     Dates: start: 201710, end: 20191117

REACTIONS (4)
  - Pyrexia [Recovered/Resolved]
  - Behaviour disorder [Recovered/Resolved]
  - Coma [Recovered/Resolved]
  - Magnetic resonance imaging brain abnormal [Not Recovered/Not Resolved]

NARRATIVE: CASE EVENT DATE: 2019
